FAERS Safety Report 22827873 (Version 8)
Quarter: 2024Q1

REPORT INFORMATION
  Report Type: Spontaneous
  Country: US (occurrence: US)
  Receive Date: 20230816
  Receipt Date: 20240202
  Transmission Date: 20240410
  Serious: No
  Sender: FDA-Public Use
  Company Number: US-PFIZER INC-202300273976

PATIENT
  Age: 15 Year
  Sex: Male

DRUGS (3)
  1. GENOTROPIN [Suspect]
     Active Substance: SOMATROPIN
     Dosage: UNK
  2. GENOTROPIN [Suspect]
     Active Substance: SOMATROPIN
     Dosage: 2.2 MG, ALTERNATE DAY [ALTERNATE 2.2 MG + 2.4 MG PER DAY, 6 DAYS PER WEEK]
  3. GENOTROPIN [Suspect]
     Active Substance: SOMATROPIN
     Dosage: 2.4 MG, ALTERNATE DAY [ALTERNATE 2.2 MG + 2.4 MG PER DAY, 6 DAYS PER WEEK]

REACTIONS (8)
  - Burning sensation [Unknown]
  - Taste disorder [Unknown]
  - Poor quality product administered [Unknown]
  - Device issue [Unknown]
  - Device difficult to use [Unknown]
  - Device delivery system issue [Unknown]
  - Device information output issue [Unknown]
  - Device mechanical issue [Unknown]

NARRATIVE: CASE EVENT DATE: 20230803
